FAERS Safety Report 5299141-9 (Version None)
Quarter: 2007Q2

REPORT INFORMATION
  Report Type: 
  Country: None (occurrence: None)
  Receive Date: 20070411
  Receipt Date: 20070411
  Transmission Date: 20071010
  Serious: Yes (Hospitalization)
  Sender: FDA-Public Use
  Company Number: None

PATIENT
  Age: 55 Year
  Sex: Female

DRUGS (21)
  1. ABRAXANE [Suspect]
     Indication: OVARIAN CANCER RECURRENT
     Dosage: 518.0 MG EVERY 28 DAYS
     Dates: start: 20070223
  2. CARBOPLATIN [Suspect]
     Indication: OVARIAN CANCER RECURRENT
     Dosage: 158.0 MG D1,D8,D15
     Dates: start: 20070209
  3. ACETAMINOPHEN TABLET (TYLENOL) [Concomitant]
  4. OXYCODONE-ACET 5 TABLET (PERCOET) [Concomitant]
  5. KETORLAC-INJECTION (TORADOL) [Concomitant]
  6. LORAZEPAM INJECTION (ATIVAN) [Concomitant]
  7. ZOLPIDEM TART TABLET (AMBIEN) [Concomitant]
  8. PROMETHAZINE HCL INJECTION (PHENERGAN) [Concomitant]
  9. DEXTROSE 5% (ZOFRAN) [Concomitant]
  10. WARFARIN SODIUM TABLET (COUMADIN) [Concomitant]
  11. D5 /0.045NS - KCL 20 MEQ [Concomitant]
  12. VANCOMYCIN [Concomitant]
  13. LEVAQUIN [Concomitant]
  14. VIVELLLE PATCH [Concomitant]
  15. LACTINEX [Concomitant]
  16. FLUSH [Concomitant]
  17. POTASSIUM CHLORIDE [Concomitant]
  18. LACTOBCILLUS TABLET [Concomitant]
  19. FLAGYL [Concomitant]
  20. NEUPOGEN [Concomitant]
  21. ENCXAPARIN (LEVENOX) [Concomitant]

REACTIONS (6)
  - CENTRAL LINE INFECTION [None]
  - CHILLS [None]
  - DIARRHOEA [None]
  - PNEUMONIA [None]
  - STAPHYLOCOCCAL BACTERAEMIA [None]
  - URINARY TRACT INFECTION [None]
